FAERS Safety Report 18274155 (Version 3)
Quarter: 2020Q4

REPORT INFORMATION
  Report Type: Report from Study
  Country: JP (occurrence: JP)
  Receive Date: 20200916
  Receipt Date: 20201029
  Transmission Date: 20210113
  Serious: Yes (Hospitalization)
  Sender: FDA-Public Use
  Company Number: JP-BIOMARINAP-JP-2020-132149

PATIENT
  Age: 8 Year
  Sex: Female
  Weight: 22.1 kg

DRUGS (11)
  1. MYSTAN [Concomitant]
     Active Substance: CLOBAZAM
     Indication: EPILEPSY
     Dosage: UNK
     Dates: start: 20200604, end: 20200813
  2. E KEPPRA [Concomitant]
     Active Substance: LEVETIRACETAM
     Indication: EPILEPSY
     Dosage: UNK
     Dates: start: 20200521, end: 20200827
  3. JUVELA N [Concomitant]
     Active Substance: TOCOPHERYL NICOTINATE, D-.ALPHA.
     Indication: PERIPHERAL VASCULAR DISORDER
     Dates: start: 20200213
  4. SELENICA R [Concomitant]
     Active Substance: VALPROATE SODIUM
     Indication: EPILEPSY
  5. SELENICA R [Concomitant]
     Active Substance: VALPROATE SODIUM
     Indication: PREMEDICATION
  6. FYCOMPA [Concomitant]
     Active Substance: PERAMPANEL
     Indication: PREMEDICATION
     Dosage: UNK
     Dates: start: 20200828
  7. FYCOMPA [Concomitant]
     Active Substance: PERAMPANEL
     Indication: EPILEPSY
     Dosage: UNK
     Dates: start: 20200701, end: 20200827
  8. JUVELA N [Concomitant]
     Active Substance: TOCOPHERYL NICOTINATE, D-.ALPHA.
     Indication: PREMEDICATION
  9. MYSTAN [Concomitant]
     Active Substance: CLOBAZAM
     Indication: PREMEDICATION
     Dosage: UNK
     Dates: start: 20200813
  10. E KEPPRA [Concomitant]
     Active Substance: LEVETIRACETAM
     Indication: PREMEDICATION
     Dosage: UNK
     Dates: start: 20200827, end: 20200910
  11. BRINEURA [Suspect]
     Active Substance: CERLIPONASE ALFA
     Indication: NEURONAL CEROID LIPOFUSCINOSIS
     Dosage: UNK UNK, QOW
     Route: 020
     Dates: start: 20200115

REACTIONS (1)
  - Device occlusion [Recovered/Resolved]

NARRATIVE: CASE EVENT DATE: 20200826
